FAERS Safety Report 12106462 (Version 1)
Quarter: 2016Q1

REPORT INFORMATION
  Report Type: Report from Study
  Country: AU (occurrence: AU)
  Receive Date: 20160223
  Receipt Date: 20160223
  Transmission Date: 20160526
  Serious: Yes (Hospitalization, Other)
  Sender: FDA-Public Use
  Company Number: AU-GILEAD-2016-0199166

PATIENT
  Age: 55 Year
  Sex: Female
  Weight: 109.8 kg

DRUGS (25)
  1. BENDAMUSTINE [Suspect]
     Active Substance: BENDAMUSTINE
     Dosage: 182 MG, UNK
     Route: 042
     Dates: start: 20150617, end: 20150617
  2. BENDAMUSTINE [Suspect]
     Active Substance: BENDAMUSTINE
     Dosage: 182 MG, UNK
     Route: 042
     Dates: start: 20150813, end: 20150813
  3. BACTRIM [Concomitant]
     Active Substance: SULFAMETHOXAZOLE\TRIMETHOPRIM
     Route: 048
     Dates: start: 20150318
  4. RITUXIMAB [Suspect]
     Active Substance: RITUXIMAB
     Dosage: 1015 MG, UNK
     Route: 042
     Dates: start: 20150715, end: 20150715
  5. BENDAMUSTINE [Suspect]
     Active Substance: BENDAMUSTINE
     Dosage: 182 MG, UNK
     Route: 042
     Dates: start: 20150422, end: 20150422
  6. ALLOPURINOL. [Concomitant]
     Active Substance: ALLOPURINOL
     Route: 048
     Dates: start: 20150318
  7. RITUXIMAB [Suspect]
     Active Substance: RITUXIMAB
     Dosage: 1015 MG, UNK
     Route: 042
     Dates: start: 20150617, end: 20150617
  8. RITUXIMAB [Suspect]
     Active Substance: RITUXIMAB
     Dosage: 1015 MG, UNK
     Route: 042
     Dates: start: 20150422, end: 20150422
  9. BENDAMUSTINE [Suspect]
     Active Substance: BENDAMUSTINE
     Indication: CHRONIC LYMPHOCYTIC LEUKAEMIA
     Route: 042
     Dates: start: 20150318, end: 20150318
  10. ACICLOVIR [Concomitant]
     Active Substance: ACYCLOVIR
     Route: 048
     Dates: start: 20150318
  11. BENDAMUSTINE [Suspect]
     Active Substance: BENDAMUSTINE
     Dosage: 182 MG, UNK
     Route: 042
     Dates: start: 20150618, end: 20150618
  12. BENDAMUSTINE [Suspect]
     Active Substance: BENDAMUSTINE
     Dosage: 182 MG, UNK
     Route: 042
     Dates: start: 20150812, end: 20150812
  13. BENDAMUSTINE [Suspect]
     Active Substance: BENDAMUSTINE
     Dosage: 182 MG, UNK
     Route: 042
     Dates: start: 20150423, end: 20150423
  14. BENDAMUSTINE [Suspect]
     Active Substance: BENDAMUSTINE
     Route: 042
     Dates: start: 20150521, end: 20150521
  15. CRESTOR [Concomitant]
     Active Substance: ROSUVASTATIN CALCIUM
     Indication: HYPERCHOLESTEROLAEMIA
     Route: 048
     Dates: start: 2008
  16. PANTOPRAZOLE [Concomitant]
     Active Substance: PANTOPRAZOLE SODIUM
     Route: 048
     Dates: start: 20150318
  17. RITUXIMAB [Suspect]
     Active Substance: RITUXIMAB
     Dosage: 1015 MG, UNK
     Route: 042
     Dates: start: 20150812, end: 20150812
  18. BENDAMUSTINE [Suspect]
     Active Substance: BENDAMUSTINE
     Dosage: 182 MG, UNK
     Route: 042
     Dates: start: 20150715, end: 20150715
  19. RITUXIMAB [Suspect]
     Active Substance: RITUXIMAB
     Dosage: 1015 MG, UNK
     Route: 042
     Dates: start: 20150520, end: 20150520
  20. BENDAMUSTINE [Suspect]
     Active Substance: BENDAMUSTINE
     Route: 042
     Dates: start: 20150520, end: 20150520
  21. RITUXIMAB [Suspect]
     Active Substance: RITUXIMAB
     Indication: CHRONIC LYMPHOCYTIC LEUKAEMIA
     Route: 042
     Dates: start: 20150318, end: 20150318
  22. ASPIRIN                            /00002701/ [Concomitant]
     Active Substance: ASPIRIN
     Route: 048
     Dates: start: 2008
  23. IDELALISIB [Suspect]
     Active Substance: IDELALISIB
     Indication: CHRONIC LYMPHOCYTIC LEUKAEMIA
     Dosage: 150 MG, BID
     Route: 048
     Dates: start: 20150318, end: 20160217
  24. BENDAMUSTINE [Suspect]
     Active Substance: BENDAMUSTINE
     Dosage: 182 MG, UNK
     Route: 042
     Dates: start: 20150319, end: 20150319
  25. BENDAMUSTINE [Suspect]
     Active Substance: BENDAMUSTINE
     Dosage: 182 MG, UNK
     Route: 042
     Dates: start: 20150716, end: 20150716

REACTIONS (1)
  - Appendicitis [Not Recovered/Not Resolved]

NARRATIVE: CASE EVENT DATE: 20160217
